FAERS Safety Report 9555217 (Version 1)
Quarter: 2013Q3

REPORT INFORMATION
  Report Type: Spontaneous
  Country: US (occurrence: None)
  Receive Date: 20130815
  Receipt Date: 20130815
  Transmission Date: 20140515
  Serious: Yes (Hospitalization, Other)
  Sender: FDA-Public Use
  Company Number: ADR-2012-01409

PATIENT
  Sex: Female

DRUGS (6)
  1. BACLOFEN [Suspect]
     Indication: PAIN
  2. BACLOFEN [Suspect]
     Indication: BACK PAIN
  3. BACLOFEN [Suspect]
     Indication: SPINAL PAIN
  4. CLONIDINE [Concomitant]
  5. BUPIVACAINE [Concomitant]
  6. MORPHINE [Concomitant]

REACTIONS (1)
  - Tracheostomy infection [None]
